FAERS Safety Report 9057028 (Version 1)
Quarter: 2013Q1

REPORT INFORMATION
  Report Type: Report from Study
  Country: None (occurrence: US)
  Receive Date: 20130131
  Receipt Date: 20130131
  Transmission Date: 20140127
  Serious: No
  Sender: FDA-Public Use
  Company Number: US-ABBOTT-12P-163-0992620-00

PATIENT
  Age: 49 Year
  Sex: Female

DRUGS (7)
  1. HUMIRA [Suspect]
     Indication: RHEUMATOID ARTHRITIS
     Dates: start: 201111
  2. METHOTREXATE [Concomitant]
     Indication: RHEUMATOID ARTHRITIS
  3. PRO AIR INHALER [Concomitant]
     Indication: WHEEZING
     Route: 055
  4. ADVENT [Concomitant]
     Indication: ASTHMA
     Route: 055
  5. FOLIC ACID [Concomitant]
     Indication: PRODUCT USED FOR UNKNOWN INDICATION
     Dosage: DAILY
  6. FISH OIL [Concomitant]
     Indication: PRODUCT USED FOR UNKNOWN INDICATION
     Dosage: DAILY
  7. CALCIUM [Concomitant]
     Indication: PRODUCT USED FOR UNKNOWN INDICATION
     Dosage: DAILY

REACTIONS (10)
  - Fatigue [Not Recovered/Not Resolved]
  - Fatigue [Not Recovered/Not Resolved]
  - Somnolence [Not Recovered/Not Resolved]
  - Injection site bruising [Not Recovered/Not Resolved]
  - Visual impairment [Not Recovered/Not Resolved]
  - Photophobia [Not Recovered/Not Resolved]
  - Contusion [Not Recovered/Not Resolved]
  - Asthma [Not Recovered/Not Resolved]
  - Asthma [Not Recovered/Not Resolved]
  - Platelet count decreased [Unknown]
